FAERS Safety Report 16550962 (Version 1)
Quarter: 2019Q3

REPORT INFORMATION
  Report Type: Spontaneous
  Country: PL (occurrence: PL)
  Receive Date: 20190710
  Receipt Date: 20190710
  Transmission Date: 20191004
  Serious: Yes (Other)
  Sender: FDA-Public Use
  Company Number: PL-TEVA-2019-PL-1075069

PATIENT
  Sex: Male

DRUGS (4)
  1. HYDROXYZINE [Suspect]
     Active Substance: HYDROXYZINE HYDROCHLORIDE
     Route: 065
  2. ALLUPOL [Suspect]
     Active Substance: ALLOPURINOL
     Route: 065
  3. BISOCARD [Suspect]
     Active Substance: BISOPROLOL
     Route: 065
  4. POLPRIL [Suspect]
     Active Substance: RAMIPRIL
     Route: 065

REACTIONS (4)
  - Headache [Unknown]
  - Hypertension [Unknown]
  - Tinnitus [Unknown]
  - Decreased appetite [Unknown]
